APPROVED DRUG PRODUCT: BUPROPION HYDROCHLORIDE
Active Ingredient: BUPROPION HYDROCHLORIDE
Strength: 300MG
Dosage Form/Route: TABLET, EXTENDED RELEASE;ORAL
Application: A206556 | Product #002
Applicant: INVAGEN PHARMACEUTICALS INC
Approved: Aug 26, 2016 | RLD: No | RS: No | Type: DISCN